FAERS Safety Report 5571125-2 (Version None)
Quarter: 2007Q4

REPORT INFORMATION
  Report Type: 
  Country: None (occurrence: None)
  Receive Date: 20071221
  Receipt Date: 20061208
  Transmission Date: 20080405
  Serious: No
  Sender: FDA-Public Use
  Company Number: A0560565A

PATIENT
  Age: 54 Year
  Sex: Female

DRUGS (2)
  1. FLONASE [Suspect]
     Dosage: 100MCG PER DAY
     Route: 045
     Dates: start: 20050524, end: 20050531
  2. NO CONCURRENT MEDICATION [Concomitant]

REACTIONS (6)
  - COUGH [None]
  - DIZZINESS [None]
  - EPISTAXIS [None]
  - HEADACHE [None]
  - UPPER RESPIRATORY TRACT INFECTION [None]
  - VIRAL INFECTION [None]
